FAERS Safety Report 8076275-7 (Version None)
Quarter: 2012Q1

REPORT INFORMATION
  Report Type: 
  Country: None (occurrence: None)
  Receive Date: 20120127
  Receipt Date: 20120124
  Transmission Date: 20120608
  Serious: Yes (Death, Hospitalization, Congenital Anomaly, Other)
  Sender: FDA-Public Use
  Company Number: US-PFIZER INC-2010109653

PATIENT
  Sex: Female
  Weight: 2.4 kg

DRUGS (9)
  1. ZOLOFT [Suspect]
     Indication: DEPRESSION
     Dosage: 50 MG, 1X/DAY
     Route: 064
     Dates: start: 20081103
  2. NEXIUM [Concomitant]
     Dosage: 40 MG, DAY
     Route: 064
  3. TOBREX [Concomitant]
     Indication: CONJUNCTIVITIS
     Dosage: 0.3 %, ONE DROP EVERY 4-6HOURS AS REQUIRED
     Route: 064
  4. ORTHO TRI-CYCLEN [Concomitant]
     Dosage: UNK
     Route: 064
  5. FLUCONAZOLE [Concomitant]
     Dosage: 150 MG, WEEKLY ONCE
     Route: 064
  6. ZOLOFT [Suspect]
     Indication: ANXIETY
  7. ACETYLSALICYLIC ACID [Concomitant]
     Indication: TYPE 2 DIABETES MELLITUS
     Dosage: 81 MG, DAY
     Route: 064
  8. AUGMENTIN '125' [Concomitant]
     Indication: ACUTE SINUSITIS
     Dosage: TWO TABLETS PER DAY
     Route: 064
  9. MIDRIN [Concomitant]
     Dosage: UNK
     Route: 064

REACTIONS (15)
  - ANAEMIA [None]
  - CARDIAC ARREST [None]
  - HEART DISEASE CONGENITAL [None]
  - PATENT DUCTUS ARTERIOSUS [None]
  - JAUNDICE [None]
  - SEPSIS [None]
  - ASCITES [None]
  - GROWTH RETARDATION [None]
  - HYPERGLYCAEMIA [None]
  - HEPATIC VEIN THROMBOSIS [None]
  - FOETAL EXPOSURE DURING PREGNANCY [None]
  - VENTRICULAR TACHYCARDIA [None]
  - HEART RATE DECREASED [None]
  - INTESTINAL DILATATION [None]
  - EXOMPHALOS [None]
